FAERS Safety Report 17423023 (Version 1)
Quarter: 2020Q1

REPORT INFORMATION
  Report Type: Spontaneous
  Country: US (occurrence: US)
  Receive Date: 20200216
  Receipt Date: 20200216
  Transmission Date: 20200409
  Serious: Yes (Hospitalization)
  Sender: FDA-Public Use
  Company Number: US-ABBVIE-20K-163-3276153-00

PATIENT
  Age: 43 Year
  Sex: Female

DRUGS (3)
  1. BETAMETHASONE DIPROPIONATE. [Concomitant]
     Active Substance: BETAMETHASONE DIPROPIONATE
     Indication: PSORIASIS
     Dosage: LOTION
  2. ALBUTEROL. [Concomitant]
     Active Substance: ALBUTEROL
     Indication: ASTHMA
  3. SKYRIZI [Suspect]
     Active Substance: RISANKIZUMAB-RZAA
     Indication: PSORIASIS
     Route: 058
     Dates: start: 20191217

REACTIONS (5)
  - Blood glucose increased [Unknown]
  - Headache [Unknown]
  - Cerebrovascular accident [Unknown]
  - Tunnel vision [Unknown]
  - Hypoacusis [Unknown]

NARRATIVE: CASE EVENT DATE: 2020
